FAERS Safety Report 15106072 (Version 1)
Quarter: 2018Q3

REPORT INFORMATION
  Report Type: Spontaneous
  Country: FR (occurrence: FR)
  Receive Date: 20180704
  Receipt Date: 20180704
  Transmission Date: 20181010
  Serious: Yes (Death, Life-Threatening, Hospitalization)
  Sender: FDA-Public Use
  Company Number: FR-SUN PHARMACEUTICAL INDUSTRIES LTD-2018RR-177352

PATIENT
  Age: 70 Year
  Sex: Male
  Weight: 118 kg

DRUGS (15)
  1. LEVOTHYROX [Concomitant]
     Active Substance: LEVOTHYROXINE
     Indication: PRODUCT USED FOR UNKNOWN INDICATION
     Dosage: 75 UG, UNK
     Route: 065
     Dates: start: 20150912
  2. TN UNSPECIFIED [Concomitant]
     Active Substance: TROLNITRATE
     Dosage: 10 MG, TID
     Route: 065
  3. NIVOLUMAB [Suspect]
     Active Substance: NIVOLUMAB
     Indication: HEPATOCELLULAR CARCINOMA
     Dosage: 240 MG ONCE EVERY TWO WEEKS
     Route: 042
     Dates: start: 20160509, end: 20160926
  4. HYPERIUM [Concomitant]
     Active Substance: RILMENIDINE PHOSPHATE
     Indication: PRODUCT USED FOR UNKNOWN INDICATION
     Dosage: 1 MG, UNK
     Route: 065
  5. KARDEGIC [Concomitant]
     Active Substance: ASPIRIN DL-LYSINE
     Indication: PRODUCT USED FOR UNKNOWN INDICATION
     Dosage: 75 MG, UNK
     Route: 065
  6. TN UNSPECIFIED [Concomitant]
     Active Substance: TROLNITRATE
     Indication: PRODUCT USED FOR UNKNOWN INDICATION
     Dosage: 40 MG, UNK
     Route: 065
  7. TN UNSPECIFIED [Concomitant]
     Active Substance: TROLNITRATE
     Dosage: 1 DF, UNK
     Route: 065
  8. TN UNSPECIFIED [Concomitant]
     Active Substance: TROLNITRATE
     Dosage: 50 MG, TID
     Route: 065
  9. TN UNSPECIFIED [Concomitant]
     Active Substance: TROLNITRATE
     Dosage: 200 MG, UNK
     Route: 065
  10. TN UNSPECIFIED [Concomitant]
     Active Substance: TROLNITRATE
     Indication: PRODUCT USED FOR UNKNOWN INDICATION
     Dosage: 75 MG, UNK
     Route: 065
  11. INEXIUM [Concomitant]
     Active Substance: ESOMEPRAZOLE
     Indication: PRODUCT USED FOR UNKNOWN INDICATION
     Dosage: 20 MG
     Route: 065
     Dates: start: 20160926
  12. LASILIX [Concomitant]
     Active Substance: FUROSEMIDE
     Indication: PRODUCT USED FOR UNKNOWN INDICATION
     Dosage: UNK
     Route: 065
     Dates: start: 20160718
  13. METFORMIN [Suspect]
     Active Substance: METFORMIN HYDROCHLORIDE
     Indication: PRODUCT USED FOR UNKNOWN INDICATION
     Dosage: 500 MG, FILM?COATED TABLET
     Route: 065
  14. FUNGIZONE [Concomitant]
     Active Substance: AMPHOTERICIN B
     Indication: PRODUCT USED FOR UNKNOWN INDICATION
     Dosage: 3 SPOONS PER DAY
     Route: 065
     Dates: start: 20160926
  15. TN UNSPECIFIED [Concomitant]
     Active Substance: TROLNITRATE
     Dosage: 3 DF, UNK
     Route: 065
     Dates: start: 20160801

REACTIONS (3)
  - Renal failure [Fatal]
  - Multiple organ dysfunction syndrome [Fatal]
  - Lactic acidosis [Fatal]

NARRATIVE: CASE EVENT DATE: 20161002
